FAERS Safety Report 14797668 (Version 13)
Quarter: 2020Q4

REPORT INFORMATION
  Report Type: Spontaneous
  Country: GB (occurrence: GB)
  Receive Date: 20180424
  Receipt Date: 20201124
  Transmission Date: 20210113
  Serious: Yes (Hospitalization, Other)
  Sender: FDA-Public Use
  Company Number: GB-BIOGEN-2017BI00417093

PATIENT
  Sex: Female

DRUGS (11)
  1. FAMPYRA [Suspect]
     Active Substance: DALFAMPRIDINE
     Route: 050
  2. FAMPYRA [Suspect]
     Active Substance: DALFAMPRIDINE
     Route: 048
     Dates: start: 2013
  3. OXYBUTYNIN. [Concomitant]
     Active Substance: OXYBUTYNIN CHLORIDE
     Indication: PRODUCT USED FOR UNKNOWN INDICATION
     Route: 065
  4. FAMPYRA [Suspect]
     Active Substance: DALFAMPRIDINE
     Route: 050
  5. DESMOPRESSIN [Concomitant]
     Active Substance: DESMOPRESSIN
     Indication: PRODUCT USED FOR UNKNOWN INDICATION
     Route: 065
  6. FAMPYRA [Suspect]
     Active Substance: DALFAMPRIDINE
     Route: 050
  7. FAMPYRA [Suspect]
     Active Substance: DALFAMPRIDINE
     Indication: MULTIPLE SCLEROSIS
     Route: 050
     Dates: start: 20130206
  8. TYSABRI [Suspect]
     Active Substance: NATALIZUMAB
     Indication: PRODUCT USED FOR UNKNOWN INDICATION
     Route: 065
  9. FLUOXETINE [Concomitant]
     Active Substance: FLUOXETINE HYDROCHLORIDE
     Indication: PRODUCT USED FOR UNKNOWN INDICATION
     Route: 065
  10. FAMPYRA [Suspect]
     Active Substance: DALFAMPRIDINE
     Route: 050
     Dates: start: 2013
  11. FAMPYRA [Suspect]
     Active Substance: DALFAMPRIDINE
     Route: 048
     Dates: start: 2013

REACTIONS (24)
  - Multiple sclerosis relapse [Unknown]
  - Arthropathy [Unknown]
  - Emotional distress [Unknown]
  - Nerve injury [Unknown]
  - Balance disorder [Unknown]
  - Depression [Recovered/Resolved]
  - Multiple sclerosis [Unknown]
  - Suicidal ideation [Recovered/Resolved]
  - Pain [Unknown]
  - Skin laceration [Unknown]
  - Contusion [Unknown]
  - Product dose omission issue [Unknown]
  - Inappropriate schedule of product administration [Unknown]
  - Initial insomnia [Unknown]
  - Fatigue [Unknown]
  - Malaise [Unknown]
  - Memory impairment [Unknown]
  - Bipolar disorder [Unknown]
  - Movement disorder [Unknown]
  - General physical health deterioration [Unknown]
  - Fall [Recovered/Resolved]
  - Prescribed underdose [Unknown]
  - Gait disturbance [Unknown]
  - Urinary tract infection [Unknown]
